FAERS Safety Report 14298458 (Version 1)
Quarter: 2017Q4

REPORT INFORMATION
  Report Type: Spontaneous
  Country: US (occurrence: US)
  Receive Date: 20171218
  Receipt Date: 20171218
  Transmission Date: 20180321
  Serious: Yes (Other)
  Sender: FDA-Public Use
  Company Number: US-ALLERGAN-1771426US

PATIENT
  Sex: Female

DRUGS (1)
  1. NORCO [Suspect]
     Active Substance: ACETAMINOPHEN\HYDROCODONE BITARTRATE
     Indication: PRODUCT USED FOR UNKNOWN INDICATION
     Route: 065

REACTIONS (8)
  - Monoparesis [Unknown]
  - Somnolence [Unknown]
  - Limb deformity [Unknown]
  - Pain in extremity [Unknown]
  - Wound secretion [Unknown]
  - Muscle spasms [Unknown]
  - Skin wound [Unknown]
  - Insomnia [Unknown]
